FAERS Safety Report 21412652 (Version 1)
Quarter: 2022Q4

REPORT INFORMATION
  Report Type: Spontaneous
  Country: ES (occurrence: ES)
  Receive Date: 20221005
  Receipt Date: 20221005
  Transmission Date: 20230113
  Serious: Yes (Hospitalization)
  Sender: FDA-Public Use
  Company Number: ES-ACERUSPHRM-2022-ES-000001

PATIENT
  Age: 35 Year
  Sex: 0
  Weight: 70 kg

DRUGS (5)
  1. TESTOSTERONE [Suspect]
     Active Substance: TESTOSTERONE
     Indication: Gender reassignment therapy
     Dosage: 250MG/ML
     Route: 030
  2. pregnancy vitamins [Concomitant]
     Indication: Pregnancy
  3. FOLIC ACID [Concomitant]
     Active Substance: FOLIC ACID
     Indication: Pregnancy
  4. ASPIRIN [Concomitant]
     Active Substance: ASPIRIN
     Indication: Prophylaxis
  5. BETAMETHASONE [Concomitant]
     Active Substance: BETAMETHASONE
     Dosage: 2 ML/24 H, 2 DOSES,

REACTIONS (3)
  - Product use in unapproved indication [Unknown]
  - Foetal monitoring abnormal [Unknown]
  - Drug exposure before pregnancy [Unknown]
